FAERS Safety Report 5008711-4 (Version None)
Quarter: 2006Q2

REPORT INFORMATION
  Report Type: 
  Country: None (occurrence: None)
  Receive Date: 20060518
  Receipt Date: 20060510
  Transmission Date: 20061013
  Serious: Yes (Other)
  Sender: FDA-Public Use
  Company Number: 2006056227

PATIENT
  Age: 22 Year
  Sex: Male
  Weight: 54.4316 kg

DRUGS (2)
  1. ZOLOFT [Suspect]
     Indication: OBSESSIVE-COMPULSIVE DISORDER
     Dosage: 50 MG
     Dates: start: 20051001
  2. GEODON [Suspect]
     Indication: BIPOLAR DISORDER
     Dosage: 120 MG (120 MG, 1 IN 1 D)
     Dates: start: 20060414, end: 20060417

REACTIONS (7)
  - BIPOLAR DISORDER [None]
  - CONDITION AGGRAVATED [None]
  - INSOMNIA [None]
  - MUSCLE SPASMS [None]
  - PANIC DISORDER [None]
  - SOMNOLENCE [None]
  - THINKING ABNORMAL [None]
